FAERS Safety Report 6825606-1 (Version None)
Quarter: 2010Q3

REPORT INFORMATION
  Report Type: 
  Country: None (occurrence: None)
  Receive Date: 20100708
  Receipt Date: 20090630
  Transmission Date: 20110219
  Serious: No
  Sender: FDA-Public Use
  Company Number: US-PFIZER INC-2006123140

PATIENT
  Sex: Male
  Weight: 116.12 kg

DRUGS (27)
  1. CHANTIX [Suspect]
     Indication: SMOKING CESSATION THERAPY
     Dosage: 0.5 MG, 1X/DAY
     Dates: start: 20060829
  2. DIGITEK [Concomitant]
  3. ACETYLSALICYLIC ACID [Concomitant]
  4. ALBUTEROL [Concomitant]
  5. ADVAIR DISKUS 100/50 [Concomitant]
  6. SPIRIVA [Concomitant]
  7. HYDRALAZINE HCL [Concomitant]
  8. POTASSIUM CHLORIDE [Concomitant]
  9. TRAZODONE [Concomitant]
  10. ALDACTONE [Concomitant]
  11. ZAROXOLYN [Concomitant]
  12. NEURONTIN [Concomitant]
  13. MULTI-VITAMINS [Concomitant]
  14. DEMADEX [Concomitant]
  15. ISOSORBIDE [Concomitant]
  16. REGLAN [Concomitant]
  17. MAGNESIUM [Concomitant]
  18. ROBAXIN [Concomitant]
  19. AMBIEN [Concomitant]
  20. DURAGESIC-100 [Concomitant]
     Route: 062
  21. GARLIC [Concomitant]
  22. VITAMIN B COMPLEX CAP [Concomitant]
  23. VITAMIN E [Concomitant]
  24. LOVASTATIN [Concomitant]
  25. EFFEXOR [Concomitant]
  26. WELLBUTRIN [Concomitant]
  27. BUSPAR [Concomitant]

REACTIONS (4)
  - ABNORMAL DREAMS [None]
  - DRUG INEFFECTIVE [None]
  - NAUSEA [None]
  - TINNITUS [None]
